FAERS Safety Report 17335538 (Version 1)
Quarter: 2020Q1

REPORT INFORMATION
  Report Type: Spontaneous
  Country: US (occurrence: US)
  Receive Date: 20200128
  Receipt Date: 20200128
  Transmission Date: 20200409
  Serious: Yes (Other)
  Sender: FDA-Public Use
  Company Number: US-JNJFOC-20200130194

PATIENT

DRUGS (1)
  1. CLEAN AND CLEAR ADVANTAGE ACNE SPOT TREATMENT [Suspect]
     Active Substance: SALICYLIC ACID
     Indication: PRODUCT USED FOR UNKNOWN INDICATION
     Dosage: USED THE PRODUCT THREE TIMES
     Route: 061

REACTIONS (4)
  - Asthmatic crisis [Unknown]
  - Application site erythema [Unknown]
  - Application site pain [Unknown]
  - Application site swelling [Recovered/Resolved]
